FAERS Safety Report 11863691 (Version 1)
Quarter: 2015Q4

REPORT INFORMATION
  Report Type: Spontaneous
  Country: GB (occurrence: GB)
  Receive Date: 20151223
  Receipt Date: 20151223
  Transmission Date: 20160305
  Serious: Yes (Other)
  Sender: FDA-Public Use
  Company Number: GB-WATSON-2015-27652

PATIENT
  Age: 54 Year
  Sex: Female
  Weight: 76.2 kg

DRUGS (4)
  1. MORPHINE [Concomitant]
     Active Substance: MORPHINE
     Indication: MAMMOPLASTY
     Dosage: UNK
     Route: 065
     Dates: start: 20150924, end: 20151001
  2. PARACETAMOL [Concomitant]
     Active Substance: ACETAMINOPHEN
     Indication: MAMMOPLASTY
     Dosage: UNK
     Route: 065
     Dates: start: 20150924, end: 20151001
  3. TAMOXIFEN (UNKNOWN) [Suspect]
     Active Substance: TAMOXIFEN
     Indication: NEOPLASM PROPHYLAXIS
     Dosage: 20 MG, DAILY
     Route: 002
     Dates: start: 20151113, end: 20151120
  4. IBUPROFEN. [Concomitant]
     Active Substance: IBUPROFEN
     Indication: MAMMOPLASTY
     Dosage: UNK
     Route: 065
     Dates: start: 20150924, end: 20151001

REACTIONS (6)
  - Chromaturia [Recovered/Resolved]
  - Dizziness [Recovered/Resolved]
  - Diarrhoea [Recovered/Resolved]
  - Dyspnoea [Recovered/Resolved]
  - Malaise [Recovered/Resolved]
  - Paraesthesia [Recovered/Resolved]

NARRATIVE: CASE EVENT DATE: 20151114
